FAERS Safety Report 7028245-5 (Version None)
Quarter: 2010Q4

REPORT INFORMATION
  Report Type: 
  Country: None (occurrence: None)
  Receive Date: 20101001
  Receipt Date: 20101001
  Transmission Date: 20110411
  Serious: No
  Sender: FDA-Public Use
  Company Number: None

PATIENT
  Age: 57 Year
  Sex: Male
  Weight: 119 kg

DRUGS (1)
  1. LOSARTAN [Suspect]
     Dosage: 100 MG EVERY DAY PO
     Route: 048
     Dates: start: 20070831, end: 20100716

REACTIONS (2)
  - BLOOD CREATININE INCREASED [None]
  - BLOOD UREA INCREASED [None]
